FAERS Safety Report 9997583 (Version 2)
Quarter: 2014Q2

REPORT INFORMATION
  Report Type: Spontaneous
  Country: JP (occurrence: JP)
  Receive Date: 20140311
  Receipt Date: 20140414
  Transmission Date: 20141212
  Serious: Yes (Other)
  Sender: FDA-Public Use
  Company Number: JP-PFIZER INC-2014063759

PATIENT
  Age: 70 Year
  Sex: Female

DRUGS (1)
  1. LINEZOLID [Suspect]
     Indication: STAPHYLOCOCCAL INFECTION
     Dosage: 600 MG, 2X/DAY

REACTIONS (2)
  - Shock [Recovered/Resolved]
  - Lactic acidosis [Recovered/Resolved]
